FAERS Safety Report 15685962 (Version 2)
Quarter: 2018Q4

REPORT INFORMATION
  Report Type: Spontaneous
  Country: US (occurrence: US)
  Receive Date: 20181204
  Receipt Date: 20181228
  Transmission Date: 20190205
  Serious: No
  Sender: FDA-Public Use
  Company Number: US-SA-2018SA327563

PATIENT
  Age: 48 Year
  Sex: Female

DRUGS (9)
  1. DUPIXENT [Suspect]
     Active Substance: DUPILUMAB
     Indication: DERMATITIS ALLERGIC
     Dosage: 300 MG/2ML
     Route: 058
     Dates: start: 20181109
  2. CLOBETASOL [Concomitant]
     Active Substance: CLOBETASOL
  3. LEVOTHYROXINE. [Concomitant]
     Active Substance: LEVOTHYROXINE
  4. MUPIROCIN. [Concomitant]
     Active Substance: MUPIROCIN
     Dosage: UNK
  5. TRIAMCINOLONE [Concomitant]
     Active Substance: TRIAMCINOLONE
  6. VENLAFAXIN [Concomitant]
     Active Substance: VENLAFAXINE HYDROCHLORIDE
  7. CEFADROXIL. [Concomitant]
     Active Substance: CEFADROXIL
  8. TACROLIMUS. [Concomitant]
     Active Substance: TACROLIMUS
  9. CLINDAMYCIN. [Concomitant]
     Active Substance: CLINDAMYCIN

REACTIONS (2)
  - Eye pain [Not Recovered/Not Resolved]
  - Eczema [Not Recovered/Not Resolved]
